FAERS Safety Report 9214509 (Version 2)
Quarter: 2013Q2

REPORT INFORMATION
  Report Type: Report from Study
  Country: GB (occurrence: GB)
  Receive Date: 20130405
  Receipt Date: 20130411
  Transmission Date: 20140414
  Serious: Yes (Death, Hospitalization)
  Sender: FDA-Public Use
  Company Number: PHHO2012GB008879

PATIENT
  Age: 68 Year
  Sex: Male
  Weight: 80.6 kg

DRUGS (4)
  1. SOM230 [Suspect]
     Indication: PANCREATIC NEUROENDOCRINE TUMOUR
     Dosage: 40 MG, UNK
     Route: 030
     Dates: start: 20120523, end: 20120626
  2. AFINITOR [Suspect]
     Indication: PANCREATIC NEUROENDOCRINE TUMOUR
     Dosage: 10 MG, QD
     Route: 048
     Dates: start: 20120523, end: 20120611
  3. AFINITOR [Suspect]
     Dosage: 10 MG, QD
     Route: 048
     Dates: start: 20120618, end: 20120626
  4. CREON [Concomitant]
     Indication: SUPPLEMENTATION THERAPY
     Dosage: 40000 U, TID

REACTIONS (6)
  - Hyperglycaemia [Not Recovered/Not Resolved]
  - Blood creatinine increased [Not Recovered/Not Resolved]
  - Pancreatic neuroendocrine tumour [Fatal]
  - Pyrexia [Not Recovered/Not Resolved]
  - Vomiting [Not Recovered/Not Resolved]
  - Nausea [Recovered/Resolved]
